FAERS Safety Report 7459859-6 (Version None)
Quarter: 2011Q2

REPORT INFORMATION
  Report Type: 
  Country: None (occurrence: None)
  Receive Date: 20110504
  Receipt Date: 20110504
  Transmission Date: 20111010
  Serious: No
  Sender: FDA-Public Use
  Company Number: None

PATIENT
  Age: 61 Year
  Sex: Female
  Weight: 127.4 kg

DRUGS (1)
  1. LOVENOX [Suspect]
     Indication: KNEE ARTHROPLASTY
     Dosage: Q24H SQ  (X 2 DOSES)
     Route: 058
     Dates: start: 20110414, end: 20110415

REACTIONS (4)
  - HEPARIN-INDUCED THROMBOCYTOPENIA [None]
  - LEG AMPUTATION [None]
  - PERIPHERAL ARTERIAL OCCLUSIVE DISEASE [None]
  - ARTERIAL THROMBOSIS LIMB [None]
